FAERS Safety Report 4287405-7 (Version None)
Quarter: 2004Q1

REPORT INFORMATION
  Report Type: 
  Country: None (occurrence: None)
  Receive Date: 20040205
  Receipt Date: 20040121
  Transmission Date: 20041129
  Serious: Yes (Hospitalization, Other)
  Sender: FDA-Public Use
  Company Number: USA031049402

PATIENT
  Age: 72 Year
  Sex: Female
  Weight: 42 kg

DRUGS (11)
  1. FORTEO [Suspect]
     Indication: OSTEOSCLEROSIS
     Dosage: 20 UG/DAY
     Dates: start: 20030401
  2. AMBIEN [Concomitant]
  3. CALAN SR (VERAPAMIL HYDROCHLORIDE) [Concomitant]
  4. PREVACID [Concomitant]
  5. CALCIUM CARBONATE [Concomitant]
  6. CLARITIN [Concomitant]
  7. COMBIVENT [Concomitant]
  8. NASONEX [Concomitant]
  9. PEPCID [Concomitant]
  10. MAGNESIUM OXIDE [Concomitant]
  11. ULTRACET [Concomitant]

REACTIONS (13)
  - ABDOMINAL PAIN [None]
  - ASTHENIA [None]
  - CHRONIC OBSTRUCTIVE AIRWAYS DISEASE EXACERBATED [None]
  - CONDITION AGGRAVATED [None]
  - COUGH [None]
  - DYSPNOEA [None]
  - FALL [None]
  - HEADACHE [None]
  - INTERSTITIAL LUNG DISEASE [None]
  - NASAL CONGESTION [None]
  - NAUSEA [None]
  - NUCLEAR MAGNETIC RESONANCE IMAGING BRAIN ABNORMAL [None]
  - WEIGHT DECREASED [None]
